FAERS Safety Report 4686010-8 (Version None)
Quarter: 2005Q2

REPORT INFORMATION
  Report Type: 
  Country: None (occurrence: None)
  Receive Date: 20050606
  Receipt Date: 20050525
  Transmission Date: 20051028
  Serious: Yes (Other)
  Sender: FDA-Public Use
  Company Number: 2005-05-0863

PATIENT
  Age: 19 Year
  Sex: Female
  Weight: 113.3993 kg

DRUGS (3)
  1. ALBUTEROL SULFATE AUTOHALER [Suspect]
     Indication: INFECTION
     Dosage: ORAL AER INH
     Route: 055
  2. TRAZODONE [Concomitant]
  3. LEXAPRO [Concomitant]

REACTIONS (5)
  - CYANOSIS [None]
  - DEPRESSED LEVEL OF CONSCIOUSNESS [None]
  - FOREIGN BODY TRAUMA [None]
  - MEDICAL DEVICE COMPLICATION [None]
  - PAIN [None]
